FAERS Safety Report 6547481-5 (Version None)
Quarter: 2010Q1

REPORT INFORMATION
  Report Type: 
  Country: None (occurrence: None)
  Receive Date: 20100122
  Receipt Date: 20100112
  Transmission Date: 20100710
  Serious: Yes (Hospitalization)
  Sender: FDA-Public Use
  Company Number: US-ROCHE-679334

PATIENT
  Sex: Male
  Weight: 72.6 kg

DRUGS (13)
  1. BEVACIZUMAB [Suspect]
     Route: 042
     Dates: start: 20090306, end: 20091203
  2. OXALIPLATIN [Suspect]
     Route: 042
     Dates: start: 20090306, end: 20091203
  3. DOCETAXEL [Suspect]
     Route: 042
     Dates: start: 20090306, end: 20091203
  4. ROXICET [Concomitant]
     Dosage: 5-325 MG/5ML
     Route: 048
  5. BARLEY [Concomitant]
     Dosage: BARLEY GRASS XX POWD- 1 TSP BY MOUTH DAILY
  6. MULTIVITAMIN NOS [Concomitant]
     Route: 048
  7. VITAMIN D3 [Concomitant]
     Route: 048
  8. CORAL CALCIUM SUPREME [Concomitant]
     Dosage: 1 PACKET DAILY
  9. IMODIUM [Concomitant]
     Route: 048
  10. ADVIL [Concomitant]
     Dosage: AS NECESSARY FOR FEVER
     Route: 048
  11. COMPAZINE [Concomitant]
     Route: 048
  12. DEXAMETHASONE [Concomitant]
     Dosage: DAYS  1-3 OF EACH CHEMO TREATMENT
     Route: 048
  13. SELENIUM [Concomitant]
     Route: 048

REACTIONS (4)
  - DEHYDRATION [None]
  - DYSPHAGIA [None]
  - OESOPHAGEAL STENOSIS [None]
  - WEIGHT DECREASED [None]
